FAERS Safety Report 7219513-2 (Version None)
Quarter: 2011Q1

REPORT INFORMATION
  Report Type: 
  Country: None (occurrence: None)
  Receive Date: 20110111
  Receipt Date: 20110103
  Transmission Date: 20110831
  Serious: Yes (Other)
  Sender: FDA-Public Use
  Company Number: US-JNJFOC-20100805066

PATIENT
  Age: 60 Year
  Sex: Female
  Weight: 81.65 kg

DRUGS (1)
  1. NEUTROGENA T/GEL THERAPEUTIC SHAMPOO EXTRA STRENGTH FORMULA [Suspect]
     Indication: DANDRUFF
     Route: 061

REACTIONS (5)
  - SKIN BURNING SENSATION [None]
  - ALOPECIA [None]
  - NERVE INJURY [None]
  - RASH [None]
  - ACNE [None]
